FAERS Safety Report 18928197 (Version 1)
Quarter: 2021Q1

REPORT INFORMATION
  Report Type: Spontaneous
  Country: US (occurrence: US)
  Receive Date: 20210223
  Receipt Date: 20210223
  Transmission Date: 20210420
  Serious: Yes (Hospitalization)
  Sender: FDA-Public Use
  Company Number: None

PATIENT
  Age: 71 Year
  Sex: Male
  Weight: 90 kg

DRUGS (1)
  1. CASIRIVIMAB/IMDEVIMAB [Suspect]
     Active Substance: CASIRIVIMAB\IMDEVIMAB
     Indication: COVID-19
     Dosage: ?          OTHER FREQUENCY:ONCE;?
     Route: 042
     Dates: start: 20210217, end: 20210217

REACTIONS (9)
  - Malaise [None]
  - Condition aggravated [None]
  - Electrocardiogram T wave inversion [None]
  - Decreased appetite [None]
  - Nausea [None]
  - Vomiting [None]
  - Acute coronary syndrome [None]
  - Dyspnoea [None]
  - COVID-19 pneumonia [None]

NARRATIVE: CASE EVENT DATE: 20210219
